FAERS Safety Report 22910762 (Version 2)
Quarter: 2024Q4

REPORT INFORMATION
  Report Type: Spontaneous
  Country: CA (occurrence: None)
  Receive Date: 20230906
  Receipt Date: 20241024
  Transmission Date: 20250114
  Serious: Yes (Other)
  Sender: ORION
  Company Number: CA-PFIZER INC-202300291577

PATIENT
  Sex: Female

DRUGS (13)
  1. METHOTREXATE [Suspect]
     Active Substance: METHOTREXATE
     Indication: Product used for unknown indication
     Dates: start: 2002
  2. ENBREL [Concomitant]
     Active Substance: ETANERCEPT
     Indication: Rheumatoid arthritis
     Dates: start: 2002, end: 2019
  3. ENBREL [Concomitant]
     Active Substance: ETANERCEPT
     Dosage: QWK
     Dates: start: 2020
  4. PANTOPRAZOLE [Concomitant]
     Active Substance: PANTOPRAZOLE
  5. LEVOTHYROXINE [Concomitant]
     Active Substance: LEVOTHYROXINE
     Dosage: UNK
  6. MOMETASONE [Concomitant]
     Active Substance: MOMETASONE
     Dosage: 1 AS NEEDED
  7. HYDROCORTISONE [Concomitant]
     Active Substance: HYDROCORTISONE
  8. BETAMETHASONE CLOTRIMAZOLE [Concomitant]
     Active Substance: BETAMETHASONE DIPROPIONATE\CLOTRIMAZOLE
  9. ELIDEL [Concomitant]
     Active Substance: PIMECROLIMUS
  10. CLARITIN [Concomitant]
     Active Substance: LORATADINE
  11. TYLENOL [Concomitant]
     Active Substance: ACETAMINOPHEN
  12. BIORON [Concomitant]
     Dosage: 1 AS NEEDED
  13. COVID-19 VACCINE [Concomitant]

REACTIONS (6)
  - Hypothyroidism [Not Recovered/Not Resolved]
  - Type 2 diabetes mellitus [Not Recovered/Not Resolved]
  - Long QT syndrome [Not Recovered/Not Resolved]
  - Gastrointestinal disorder [Unknown]
  - Inflammation [Unknown]
  - Obstructive sleep apnoea syndrome [Not Recovered/Not Resolved]
